FAERS Safety Report 9376239 (Version 2)
Quarter: 2014Q1

REPORT INFORMATION
  Report Type: Spontaneous
  Country: DK (occurrence: DK)
  Receive Date: 20130701
  Receipt Date: 20140116
  Transmission Date: 20141002
  Serious: Yes (Other)
  Sender: FDA-Public Use
  Company Number: DK-009507513-1306DNK011538

PATIENT
  Sex: Female

DRUGS (2)
  1. TRILAFON DECANOATE [Suspect]
     Indication: SCHIZOPHRENIA, PARANOID TYPE
     Dosage: 4 MG / DAILY
     Dates: start: 20130425
  2. INVEGA [Suspect]
     Indication: SCHIZOPHRENIA, PARANOID TYPE
     Dosage: 4.5 MG / DAILY UP TO WEEK 4 + 1
     Route: 048
     Dates: start: 20110119, end: 20130424

REACTIONS (2)
  - Abortion missed [Not Recovered/Not Resolved]
  - Exposure during pregnancy [Recovered/Resolved]
